FAERS Safety Report 8806146 (Version 1)
Quarter: 2012Q4

REPORT INFORMATION
  Report Type: Spontaneous
  Country: JP (occurrence: None)
  Receive Date: 20120918
  Receipt Date: 20120918
  Transmission Date: 20130627
  Serious: Yes (Other)
  Sender: FDA-Public Use
  Company Number: DSA_59560_2012

PATIENT

DRUGS (5)
  1. FLUOROURACIL (FLUOROURACIL) [Suspect]
     Indication: GASTRIC CANCER
     Route: 042
  2. FLUOROURACIL (FLUOROURACIL) [Suspect]
     Indication: GASTRIC CANCER
     Route: 042
  3. OXALIPLATIN (OXALIPLATIN) [Suspect]
     Indication: GASTRIC CANCER
     Route: 042
  4. LEUCOVORIN [Suspect]
     Indication: GASTRIC CANCER
     Route: 042
  5. ANTINEOPLASTIC AGENTS [Concomitant]

REACTIONS (2)
  - Neutropenia [None]
  - Haematotoxicity [None]
